FAERS Safety Report 12896692 (Version 1)
Quarter: 2016Q4

REPORT INFORMATION
  Report Type: Spontaneous
  Country: AU (occurrence: AU)
  Receive Date: 20161031
  Receipt Date: 20161031
  Transmission Date: 20170207
  Serious: Yes (Other)
  Sender: FDA-Public Use
  Company Number: AU-GLAXOSMITHKLINE-AU2016GSK156395

PATIENT
  Sex: Male

DRUGS (3)
  1. PANADOL [Suspect]
     Active Substance: ACETAMINOPHEN
     Indication: PRODUCT USED FOR UNKNOWN INDICATION
     Dosage: UNK, QD
  2. NICOTINE. [Suspect]
     Active Substance: NICOTINE
     Indication: DRUG WITHDRAWAL MAINTENANCE THERAPY
     Dosage: UNK
     Dates: start: 2007
  3. NICOTINE GUM [Suspect]
     Active Substance: NICOTINE
     Indication: DRUG WITHDRAWAL MAINTENANCE THERAPY
     Dosage: UNK
     Dates: start: 2007

REACTIONS (3)
  - Syncope [Unknown]
  - Drug ineffective [Unknown]
  - Suicide attempt [Unknown]
